FAERS Safety Report 22903981 (Version 2)
Quarter: 2023Q4

REPORT INFORMATION
  Report Type: Spontaneous
  Country: US (occurrence: US)
  Receive Date: 20230905
  Receipt Date: 20231103
  Transmission Date: 20240110
  Serious: No
  Sender: FDA-Public Use
  Company Number: US-ELI_LILLY_AND_COMPANY-US202309001247

PATIENT
  Sex: Female

DRUGS (10)
  1. REYVOW [Suspect]
     Active Substance: LASMIDITAN
     Indication: Migraine without aura
     Dosage: UNK UNK, UNKNOWN
     Route: 065
  2. REYVOW [Suspect]
     Active Substance: LASMIDITAN
     Indication: New daily persistent headache
  3. REYVOW [Suspect]
     Active Substance: LASMIDITAN
     Indication: Facial pain
  4. BOTOX [Concomitant]
     Active Substance: ONABOTULINUMTOXINA
     Indication: Product used for unknown indication
  5. CYCLOBENZAPRINE [Concomitant]
     Active Substance: CYCLOBENZAPRINE
     Indication: Product used for unknown indication
  6. GABAPENTIN [Concomitant]
     Active Substance: GABAPENTIN
     Indication: Product used for unknown indication
  7. HYDROXYZINE [Concomitant]
     Active Substance: HYDROXYZINE HYDROCHLORIDE
     Indication: Product used for unknown indication
  8. ROSUVASTATIN [Concomitant]
     Active Substance: ROSUVASTATIN
     Indication: Product used for unknown indication
  9. ELETRIPTAN [Concomitant]
     Active Substance: ELETRIPTAN
     Indication: Product used for unknown indication
  10. VASCEPA [Concomitant]
     Active Substance: ICOSAPENT ETHYL
     Indication: Product used for unknown indication

REACTIONS (6)
  - Ventricular extrasystoles [Recovered/Resolved]
  - Heart rate increased [Unknown]
  - Paraesthesia [Unknown]
  - Insomnia [Unknown]
  - Nightmare [Unknown]
  - Hallucination [Recovered/Resolved]
